FAERS Safety Report 9908454 (Version 1)
Quarter: 2014Q1

REPORT INFORMATION
  Report Type: Spontaneous
  Country: SG (occurrence: SG)
  Receive Date: 20140219
  Receipt Date: 20140219
  Transmission Date: 20141002
  Serious: Yes (Other)
  Sender: FDA-Public Use
  Company Number: SG-009507513-1402SGP008308

PATIENT
  Age: 67 Year
  Sex: Female

DRUGS (1)
  1. FOSAMAX TAB 10 MG [Suspect]
     Dosage: UNK
     Route: 048
     Dates: start: 20130225, end: 20130513

REACTIONS (4)
  - Myalgia [Recovered/Resolved]
  - Pain [Recovered/Resolved]
  - Dyspepsia [Recovered/Resolved]
  - Abdominal discomfort [Recovered/Resolved]
